FAERS Safety Report 4893419-6 (Version None)
Quarter: 2006Q1

REPORT INFORMATION
  Report Type: 
  Country: None (occurrence: None)
  Receive Date: 20060127
  Receipt Date: 20060124
  Transmission Date: 20060701
  Serious: Yes (Life-Threatening, Hospitalization, Other)
  Sender: FDA-Public Use
  Company Number: PHBS2006NL01283

PATIENT
  Age: 46 Year
  Sex: Female

DRUGS (2)
  1. LAMISIL [Suspect]
     Indication: FUNGAL SKIN INFECTION
     Dosage: 250 MG/D
     Route: 048
     Dates: start: 20050101, end: 20050615
  2. PARACETAMOL [Concomitant]
     Dosage: 500 MG, PRN
     Dates: start: 20050101, end: 20050615

REACTIONS (1)
  - THROMBOTIC THROMBOCYTOPENIC PURPURA [None]
